FAERS Safety Report 7922892-1 (Version None)
Quarter: 2011Q4

REPORT INFORMATION
  Report Type: 
  Country: None (occurrence: None)
  Receive Date: 20111117
  Receipt Date: 20110922
  Transmission Date: 20120403
  Serious: No
  Sender: FDA-Public Use
  Company Number: US-ALLERGAN-1112656US

PATIENT
  Age: 80 Year
  Sex: Female

DRUGS (3)
  1. LASTACAFT [Suspect]
     Indication: HYPERSENSITIVITY
     Dosage: 1 GTT, QD
     Route: 047
     Dates: start: 20110915
  2. REFRESH PLUS [Concomitant]
     Route: 047
  3. NEOPOLYDEX [Concomitant]
     Indication: INFECTION

REACTIONS (2)
  - EYE IRRITATION [None]
  - EYE PAIN [None]
